FAERS Safety Report 25069673 (Version 4)
Quarter: 2025Q2

REPORT INFORMATION
  Report Type: Spontaneous
  Country: DE (occurrence: DE)
  Receive Date: 20250312
  Receipt Date: 20250624
  Transmission Date: 20250717
  Serious: Yes (Hospitalization, Other)
  Sender: MYLAN
  Company Number: DE-SANDOZ-SDZ2025DE011172

PATIENT
  Sex: Male

DRUGS (52)
  1. PREGABALIN [Suspect]
     Active Substance: PREGABALIN
     Indication: Product used for unknown indication
  2. PREGABALIN [Suspect]
     Active Substance: PREGABALIN
     Route: 065
  3. PREGABALIN [Suspect]
     Active Substance: PREGABALIN
     Route: 065
  4. PREGABALIN [Suspect]
     Active Substance: PREGABALIN
  5. PREGABALIN [Suspect]
     Active Substance: PREGABALIN
  6. PREGABALIN [Suspect]
     Active Substance: PREGABALIN
     Route: 065
  7. PREGABALIN [Suspect]
     Active Substance: PREGABALIN
  8. PREGABALIN [Suspect]
     Active Substance: PREGABALIN
     Route: 065
  9. PREGABALIN [Suspect]
     Active Substance: PREGABALIN
     Route: 065
  10. PREGABALIN [Suspect]
     Active Substance: PREGABALIN
     Route: 065
  11. PREGABALIN [Suspect]
     Active Substance: PREGABALIN
  12. PREGABALIN [Suspect]
     Active Substance: PREGABALIN
  13. VENLAFAXINE [Suspect]
     Active Substance: VENLAFAXINE HYDROCHLORIDE
     Indication: Product used for unknown indication
  14. VENLAFAXINE [Suspect]
     Active Substance: VENLAFAXINE HYDROCHLORIDE
     Route: 065
  15. VENLAFAXINE [Suspect]
     Active Substance: VENLAFAXINE HYDROCHLORIDE
     Route: 065
  16. VENLAFAXINE [Suspect]
     Active Substance: VENLAFAXINE HYDROCHLORIDE
  17. CELECOXIB [Suspect]
     Active Substance: CELECOXIB
     Indication: Product used for unknown indication
     Dosage: 100 MG, QW (7 DAYS/ PER WEEK)
     Route: 065
     Dates: start: 20230102
  18. CELECOXIB [Suspect]
     Active Substance: CELECOXIB
     Dosage: 100 MG, QW (7 DAYS/ PER WEEK)
     Dates: start: 20230102
  19. CELECOXIB [Suspect]
     Active Substance: CELECOXIB
     Dosage: 100 MG, QW (7 DAYS/ PER WEEK)
     Dates: start: 20230102
  20. CELECOXIB [Suspect]
     Active Substance: CELECOXIB
     Dosage: 100 MG, QW (7 DAYS/ PER WEEK)
     Route: 065
     Dates: start: 20230102
  21. CELECOXIB [Suspect]
     Active Substance: CELECOXIB
     Route: 065
  22. CELECOXIB [Suspect]
     Active Substance: CELECOXIB
  23. CELECOXIB [Suspect]
     Active Substance: CELECOXIB
  24. CELECOXIB [Suspect]
     Active Substance: CELECOXIB
     Route: 065
  25. PANTOPRAZOLE [Suspect]
     Active Substance: PANTOPRAZOLE
     Indication: Product used for unknown indication
  26. PANTOPRAZOLE [Suspect]
     Active Substance: PANTOPRAZOLE
     Route: 065
  27. PANTOPRAZOLE [Suspect]
     Active Substance: PANTOPRAZOLE
     Route: 065
  28. PANTOPRAZOLE [Suspect]
     Active Substance: PANTOPRAZOLE
  29. NALOXONE HYDROCHLORIDE\TILIDINE HYDROCHLORIDE [Suspect]
     Active Substance: NALOXONE HYDROCHLORIDE\TILIDINE HYDROCHLORIDE
     Indication: Product used for unknown indication
  30. NALOXONE HYDROCHLORIDE\TILIDINE HYDROCHLORIDE [Suspect]
     Active Substance: NALOXONE HYDROCHLORIDE\TILIDINE HYDROCHLORIDE
     Route: 065
  31. NALOXONE HYDROCHLORIDE\TILIDINE HYDROCHLORIDE [Suspect]
     Active Substance: NALOXONE HYDROCHLORIDE\TILIDINE HYDROCHLORIDE
     Route: 065
  32. NALOXONE HYDROCHLORIDE\TILIDINE HYDROCHLORIDE [Suspect]
     Active Substance: NALOXONE HYDROCHLORIDE\TILIDINE HYDROCHLORIDE
  33. LERCANIDIPINE [Suspect]
     Active Substance: LERCANIDIPINE
     Indication: Product used for unknown indication
     Route: 065
  34. LERCANIDIPINE [Suspect]
     Active Substance: LERCANIDIPINE
  35. LERCANIDIPINE [Suspect]
     Active Substance: LERCANIDIPINE
  36. LERCANIDIPINE [Suspect]
     Active Substance: LERCANIDIPINE
     Route: 065
  37. LERCANIDIPINE [Suspect]
     Active Substance: LERCANIDIPINE
     Route: 065
  38. LERCANIDIPINE [Suspect]
     Active Substance: LERCANIDIPINE
  39. LERCANIDIPINE [Suspect]
     Active Substance: LERCANIDIPINE
  40. LERCANIDIPINE [Suspect]
     Active Substance: LERCANIDIPINE
     Route: 065
  41. COSENTYX [Suspect]
     Active Substance: SECUKINUMAB
     Indication: Axial spondyloarthritis
     Dosage: 150 MG, Q28D,150MG SATURATION, THEN EVERY 4 WEEKS
     Dates: start: 20240126
  42. COSENTYX [Suspect]
     Active Substance: SECUKINUMAB
     Dosage: 150 MG, Q28D,150MG SATURATION, THEN EVERY 4 WEEKS
     Route: 065
     Dates: start: 20240126
  43. COSENTYX [Suspect]
     Active Substance: SECUKINUMAB
     Dosage: 150 MG, Q28D,150MG SATURATION, THEN EVERY 4 WEEKS
     Route: 065
     Dates: start: 20240126
  44. COSENTYX [Suspect]
     Active Substance: SECUKINUMAB
     Dosage: 150 MG, Q28D,150MG SATURATION, THEN EVERY 4 WEEKS
     Dates: start: 20240126
  45. ENALAPRIL [Suspect]
     Active Substance: ENALAPRIL
     Indication: Product used for unknown indication
  46. ENALAPRIL [Suspect]
     Active Substance: ENALAPRIL
     Route: 065
  47. ENALAPRIL [Suspect]
     Active Substance: ENALAPRIL
     Route: 065
  48. ENALAPRIL [Suspect]
     Active Substance: ENALAPRIL
  49. METAMIZOLE SODIUM [Suspect]
     Active Substance: METAMIZOLE SODIUM
     Indication: Product used for unknown indication
  50. METAMIZOLE SODIUM [Suspect]
     Active Substance: METAMIZOLE SODIUM
     Route: 065
  51. METAMIZOLE SODIUM [Suspect]
     Active Substance: METAMIZOLE SODIUM
     Route: 065
  52. METAMIZOLE SODIUM [Suspect]
     Active Substance: METAMIZOLE SODIUM

REACTIONS (3)
  - Diverticulitis intestinal perforated [Unknown]
  - Intestinal resection [Recovered/Resolved]
  - Postoperative wound infection [Recovered/Resolved]

NARRATIVE: CASE EVENT DATE: 20240427
